FAERS Safety Report 22111052 (Version 3)
Quarter: 2023Q2

REPORT INFORMATION
  Report Type: Spontaneous
  Country: US (occurrence: US)
  Receive Date: 20230317
  Receipt Date: 20230419
  Transmission Date: 20230722
  Serious: No
  Sender: FDA-Public Use
  Company Number: US-JNJFOC-20230325582

PATIENT

DRUGS (2)
  1. TOPAMAX [Suspect]
     Active Substance: TOPIRAMATE
     Indication: Product used for unknown indication
     Route: 048
  2. PROPRANOLOL [Suspect]
     Active Substance: PROPRANOLOL HYDROCHLORIDE
     Indication: Product used for unknown indication
     Route: 065

REACTIONS (6)
  - Drug ineffective [Unknown]
  - Feeling abnormal [Unknown]
  - Brain fog [Unknown]
  - Fatigue [Unknown]
  - Mood swings [Unknown]
  - Crying [Unknown]
